FAERS Safety Report 5399168-2 (Version None)
Quarter: 2007Q3

REPORT INFORMATION
  Report Type: 
  Country: None (occurrence: None)
  Receive Date: 20070727
  Receipt Date: 20070717
  Transmission Date: 20080115
  Serious: Yes (Hospitalization, Other)
  Sender: FDA-Public Use
  Company Number: US-ELI_LILLY_AND_COMPANY-US200707004170

PATIENT
  Age: 62 Year
  Sex: Male

DRUGS (2)
  1. HUMALOG [Suspect]
     Indication: DIABETES MELLITUS
     Dosage: SLIDING SCALE WITH MEALS
  2. LANTUS [Concomitant]
     Dosage: 75 U, 2/D

REACTIONS (3)
  - ANAESTHETIC COMPLICATION [None]
  - COMA [None]
  - SHOULDER OPERATION [None]
